FAERS Safety Report 6236519-0 (Version None)
Quarter: 2009Q2

REPORT INFORMATION
  Report Type: 
  Country: None (occurrence: None)
  Receive Date: 20090619
  Receipt Date: 20090611
  Transmission Date: 20091009
  Serious: Yes (Other)
  Sender: FDA-Public Use
  Company Number: A0792283A

PATIENT
  Age: 0 Year
  Sex: Male

DRUGS (7)
  1. LAMOTRIGINE [Suspect]
     Indication: BIPOLAR DISORDER
     Dates: start: 20090129
  2. SUDAFED 12 HOUR [Concomitant]
  3. PROBIOTICS [Concomitant]
  4. OMEGA 3 FATTY ACID [Concomitant]
  5. IRON SUPPLEMENT [Concomitant]
  6. VITAMIN AND MINERAL PRENATAL SUPPLEMENT W/ FOLIC ACID CAP [Concomitant]
  7. ATIVAN [Concomitant]
     Dosage: .5MG AS REQUIRED

REACTIONS (3)
  - COOMBS TEST POSITIVE [None]
  - DRUG EXPOSURE DURING PREGNANCY [None]
  - JAUNDICE NEONATAL [None]
